FAERS Safety Report 7608056-X (Version None)
Quarter: 2011Q3

REPORT INFORMATION
  Report Type: 
  Country: None (occurrence: None)
  Receive Date: 20110714
  Receipt Date: 20110704
  Transmission Date: 20111222
  Serious: Yes (Hospitalization)
  Sender: FDA-Public Use
  Company Number: AU-JNJFOC-20110510660

PATIENT
  Sex: Male
  Weight: 81.3 kg

DRUGS (17)
  1. NEXIUM [Concomitant]
     Indication: GASTROINTESTINAL DISORDER THERAPY
     Route: 065
     Dates: start: 20100928
  2. ABIRATERONE ACETATE [Suspect]
     Route: 048
     Dates: start: 20110618
  3. ABIRATERONE ACETATE [Suspect]
     Indication: PROSTATE CANCER METASTATIC
     Route: 048
     Dates: start: 20110604, end: 20110606
  4. ABIRATERONE ACETATE [Suspect]
     Route: 048
     Dates: start: 20110524, end: 20110524
  5. PREDNISONE [Suspect]
     Route: 048
     Dates: start: 20110521
  6. NEURONTIN [Concomitant]
     Indication: PAIN
     Route: 065
     Dates: start: 20100101
  7. CALCIUM CARBONATE [Concomitant]
     Indication: MINERAL SUPPLEMENTATION
     Route: 065
     Dates: start: 20100101
  8. SODIUM CHLORIDE [Concomitant]
     Indication: ANAEMIA
     Route: 065
     Dates: start: 20110609, end: 20110609
  9. MORPHINE [Concomitant]
     Indication: PAIN
     Route: 065
     Dates: start: 20110609, end: 20110609
  10. LEUPROLIDE ACETATE [Concomitant]
     Indication: HORMONE THERAPY
     Route: 065
     Dates: start: 20071001
  11. BUPRENORPHINE [Suspect]
     Indication: PAIN
     Route: 062
     Dates: start: 20110616
  12. PREDNISONE [Suspect]
     Indication: PROSTATE CANCER METASTATIC
     Route: 048
     Dates: start: 20110513, end: 20110520
  13. BUPRENORPHINE [Suspect]
     Route: 062
  14. ABIRATERONE ACETATE [Suspect]
     Route: 048
     Dates: start: 20110513, end: 20110520
  15. BUPRENORPHINE [Suspect]
     Route: 062
     Dates: start: 20110517
  16. RED BLOOD CELLS [Concomitant]
     Indication: ANAEMIA
     Route: 065
     Dates: start: 20110609, end: 20110610
  17. FUROSEMIDE [Concomitant]
     Indication: ANAEMIA
     Route: 065
     Dates: start: 20110609, end: 20110610

REACTIONS (6)
  - VIRAL UPPER RESPIRATORY TRACT INFECTION [None]
  - NAUSEA [None]
  - NERVE ROOT COMPRESSION [None]
  - ANAEMIA [None]
  - VOMITING [None]
  - DEHYDRATION [None]
